FAERS Safety Report 8040866-X (Version None)
Quarter: 2012Q1

REPORT INFORMATION
  Report Type: 
  Country: None (occurrence: None)
  Receive Date: 20120112
  Receipt Date: 20120105
  Transmission Date: 20120608
  Serious: Yes (Other)
  Sender: FDA-Public Use
  Company Number: US-BIOGENIDEC-2011BI047826

PATIENT
  Age: 37 Year
  Sex: Female

DRUGS (4)
  1. IBUPROFEN [Concomitant]
     Indication: PREMEDICATION
     Dates: start: 19970101
  2. AVONEX [Suspect]
     Route: 030
     Dates: end: 20060101
  3. BENADRYL [Concomitant]
     Indication: PREMEDICATION
     Dates: start: 19970101
  4. AVONEX [Suspect]
     Indication: MULTIPLE SCLEROSIS
     Route: 030
     Dates: start: 19970101

REACTIONS (7)
  - FATIGUE [None]
  - PETIT MAL EPILEPSY [None]
  - PAIN [None]
  - ASTHENIA [None]
  - FLUSHING [None]
  - PYREXIA [None]
  - NAUSEA [None]
